FAERS Safety Report 7373017-5 (Version None)
Quarter: 2011Q1

REPORT INFORMATION
  Report Type: 
  Country: None (occurrence: None)
  Receive Date: 20110324
  Receipt Date: 20110311
  Transmission Date: 20110831
  Serious: Yes (Hospitalization)
  Sender: FDA-Public Use
  Company Number: PHHO2011FR00750

PATIENT
  Sex: Male
  Weight: 59 kg

DRUGS (8)
  1. NEORAL [Suspect]
     Indication: RENAL TRANSPLANT
     Dosage: 200 MG, UNK
     Route: 048
     Dates: start: 20100813, end: 20101231
  2. INIPOMP [Concomitant]
  3. CELLCEPT [Suspect]
     Indication: RENAL TRANSPLANT
     Dosage: 2000 MG, UNK
     Route: 048
     Dates: start: 20100813, end: 20110110
  4. TEMERIT [Concomitant]
  5. ROVALCYTE [Concomitant]
  6. VALGANCICLOVIR [Suspect]
  7. CORTANCYL [Concomitant]
     Indication: RENAL TRANSPLANT
     Dosage: 5 MG, UNK
     Route: 048
     Dates: start: 20100813
  8. TAHOR [Concomitant]

REACTIONS (7)
  - GRAFT COMPLICATION [None]
  - STAPHYLOCOCCAL BACTERAEMIA [None]
  - CYTOMEGALOVIRUS INFECTION [None]
  - RENAL FAILURE ACUTE [None]
  - PANCYTOPENIA [None]
  - AGRANULOCYTOSIS [None]
  - KIDNEY TRANSPLANT REJECTION [None]
